FAERS Safety Report 12870765 (Version 1)
Quarter: 2016Q4

REPORT INFORMATION
  Report Type: Spontaneous
  Country: US (occurrence: US)
  Receive Date: 20161020
  Receipt Date: 20161020
  Transmission Date: 20170207
  Serious: Yes (Disabling)
  Sender: FDA-Public Use
  Company Number: None

PATIENT
  Age: 50 Year
  Sex: Female
  Weight: 76.5 kg

DRUGS (5)
  1. MOXIFLOXACIN. [Suspect]
     Active Substance: MOXIFLOXACIN
     Indication: SINUSITIS
     Dosage: ?          QUANTITY:10 TABLET(S);?
     Route: 048
     Dates: start: 20160502, end: 20161020
  2. ARTICHOKE. [Concomitant]
     Active Substance: ARTICHOKE
  3. DEGLYCERIZED LICORICE [Concomitant]
  4. PRIMROSE OIL [Concomitant]
  5. BLACK COHOSH [Concomitant]
     Active Substance: BLACK COHOSH

REACTIONS (11)
  - Grip strength decreased [None]
  - Erythromelalgia [None]
  - Vision blurred [None]
  - Dizziness [None]
  - Tendon pain [None]
  - Pain in extremity [None]
  - Swelling [None]
  - Hyperaesthesia [None]
  - Fatigue [None]
  - Asthenia [None]
  - Posture abnormal [None]

NARRATIVE: CASE EVENT DATE: 20160829
